FAERS Safety Report 23382038 (Version 1)
Quarter: 2024Q1

REPORT INFORMATION
  Report Type: Spontaneous
  Country: US (occurrence: None)
  Receive Date: 20240108
  Receipt Date: 20240108
  Transmission Date: 20240410
  Serious: Yes (Other)
  Sender: FDA-Public Use
  Company Number: None

PATIENT
  Age: 38 Year
  Sex: Male
  Weight: 83.25 kg

DRUGS (5)
  1. CIPROFLOXACIN [Suspect]
     Active Substance: CIPROFLOXACIN
     Indication: Prostatitis
     Dates: start: 20231116, end: 20231119
  2. LISINOPRIL [Concomitant]
     Active Substance: LISINOPRIL
  3. Probiotic [Concomitant]
  4. MULTI-VITAMIN [Concomitant]
     Active Substance: .ALPHA.-TOCOPHEROL ACETATE, DL-\ASCORBIC ACID\CYANOCOBALAMIN\FLUORIDE ION\FOLIC ACID\NIACIN\PYRIDOXI
  5. VITAMIN D3 [Concomitant]
     Active Substance: CHOLECALCIFEROL

REACTIONS (13)
  - Palpitations [None]
  - Tachycardia [None]
  - Pain in jaw [None]
  - Hypoaesthesia [None]
  - Gingival recession [None]
  - Gingival pain [None]
  - Muscular weakness [None]
  - Pain in extremity [None]
  - Pain in extremity [None]
  - Myalgia [None]
  - Arthralgia [None]
  - Joint noise [None]
  - Arthralgia [None]

NARRATIVE: CASE EVENT DATE: 20231116
